FAERS Safety Report 8491325-1 (Version None)
Quarter: 2012Q3

REPORT INFORMATION
  Report Type: 
  Country: None (occurrence: None)
  Receive Date: 20120706
  Receipt Date: 20120629
  Transmission Date: 20120928
  Serious: Yes (Hospitalization, Other)
  Sender: FDA-Public Use
  Company Number: PHHY2012AU042400

PATIENT
  Sex: Male

DRUGS (9)
  1. CLOZARIL [Suspect]
     Indication: SCHIZOPHRENIA
     Dosage: 575 MG
     Route: 048
     Dates: start: 20011005
  2. VENLAFAXINE [Concomitant]
     Dosage: 150 MG, MANE
     Route: 048
  3. GLICLAZIDE [Concomitant]
     Dosage: 30 MG DAILY
     Route: 048
  4. VALPROATE SODIUM [Concomitant]
     Dosage: 1200 MG (500 MG MANE, 700 MG NOCTE)
     Route: 048
  5. CLOZARIL [Suspect]
     Dosage: 550 MG DAILY
     Route: 048
     Dates: start: 20120515
  6. ATORVASTATIN [Concomitant]
     Dosage: 150 MG, DAILY
     Route: 048
  7. METFORMIN HCL [Concomitant]
     Dosage: 2 G DAILY
  8. ASPIRIN [Concomitant]
     Dosage: 100 MG, QD
  9. AMLODIPINE BESILATE W/ OLMESARTAN MEDOXOMIL [Concomitant]
     Route: 048

REACTIONS (7)
  - EXERCISE TOLERANCE DECREASED [None]
  - DYSPNOEA [None]
  - FATIGUE [None]
  - CARDIOMYOPATHY [None]
  - ANTIPSYCHOTIC DRUG LEVEL INCREASED [None]
  - MALAISE [None]
  - PLEURAL EFFUSION [None]
